FAERS Safety Report 8260311-9 (Version None)
Quarter: 2012Q2

REPORT INFORMATION
  Report Type: 
  Country: None (occurrence: None)
  Receive Date: 20120404
  Receipt Date: 20120322
  Transmission Date: 20120825
  Serious: Yes (Hospitalization, Other)
  Sender: FDA-Public Use
  Company Number: US-ELI_LILLY_AND_COMPANY-US201202004678

PATIENT
  Sex: Male

DRUGS (2)
  1. CYMBALTA [Suspect]
     Indication: NEUROPATHY PERIPHERAL
     Dosage: 60 MG, QD
     Dates: start: 20120208, end: 20120208
  2. LYRICA [Concomitant]
     Indication: NEURALGIA

REACTIONS (8)
  - LIP INJURY [None]
  - HEADACHE [None]
  - FALL [None]
  - SYNCOPE [None]
  - BLOOD PRESSURE INCREASED [None]
  - EPISTAXIS [None]
  - OFF LABEL USE [None]
  - EYE MOVEMENT DISORDER [None]
